FAERS Safety Report 25833759 (Version 1)
Quarter: 2025Q3

REPORT INFORMATION
  Report Type: Report from Study
  Country: US (occurrence: US)
  Receive Date: 20250923
  Receipt Date: 20250923
  Transmission Date: 20251020
  Serious: Yes (Other)
  Sender: ABBVIE
  Company Number: US-ABBVIE-6468521

PATIENT
  Age: 74 Year
  Sex: Male

DRUGS (1)
  1. CREON [Suspect]
     Active Substance: PANCRELIPASE AMYLASE\PANCRELIPASE LIPASE\PANCRELIPASE PROTEASE
     Indication: Pancreatic failure
     Route: 048
     Dates: start: 202505

REACTIONS (13)
  - Pancreatic carcinoma [Unknown]
  - Oxygen saturation decreased [Unknown]
  - Abdominal discomfort [Unknown]
  - Product administration error [Unknown]
  - Urinary tract infection [Unknown]
  - Peripheral coldness [Unknown]
  - Red blood cell count decreased [Unknown]
  - Taste disorder [Unknown]
  - Product storage error [Unknown]
  - Asthenia [Unknown]
  - Malaise [Unknown]
  - Adverse drug reaction [Unknown]
  - Diabetes mellitus [Unknown]

NARRATIVE: CASE EVENT DATE: 20250101
